FAERS Safety Report 5161266-6 (Version None)
Quarter: 2006Q4

REPORT INFORMATION
  Report Type: 
  Country: None (occurrence: None)
  Receive Date: 20061130
  Receipt Date: 20060927
  Transmission Date: 20070319
  Serious: No
  Sender: FDA-Public Use
  Company Number: US-BRISTOL-MYERS SQUIBB COMPANY-13522818

PATIENT
  Age: 77 Year
  Sex: Male
  Weight: 54 kg

DRUGS (4)
  1. ERBITUX [Suspect]
     Indication: NEOPLASM MALIGNANT
     Route: 042
     Dates: start: 20060801
  2. ALOXI [Concomitant]
     Dates: start: 20060801
  3. BENADRYL [Concomitant]
     Indication: PREMEDICATION
     Route: 042
     Dates: start: 20060927
  4. DECADRON [Concomitant]
     Indication: PREMEDICATION
     Route: 042
     Dates: start: 20060927

REACTIONS (3)
  - BURNING SENSATION [None]
  - ERYTHEMA [None]
  - PRURITUS [None]
